FAERS Safety Report 15844616 (Version 3)
Quarter: 2019Q4

REPORT INFORMATION
  Report Type: Spontaneous
  Country: CA (occurrence: CA)
  Receive Date: 20190118
  Receipt Date: 20191226
  Transmission Date: 20200122
  Serious: Yes (Life-Threatening, Other)
  Sender: FDA-Public Use
  Company Number: CA-ASCEND THERAPEUTICS-2061469

PATIENT
  Age: 38 Year
  Sex: Male

DRUGS (3)
  1. SPIRONOLACTONE. [Concomitant]
     Active Substance: SPIRONOLACTONE
  2. ESTRADIOL. [Suspect]
     Active Substance: ESTRADIOL
  3. ESTROGEL [Suspect]
     Active Substance: ESTRADIOL
     Indication: TRANSGENDER HORMONAL THERAPY

REACTIONS (6)
  - Deep vein thrombosis [Not Recovered/Not Resolved]
  - Testis cancer [Recovered/Resolved]
  - Hydronephrosis [Recovered/Resolved]
  - Product use in unapproved indication [None]
  - Testicular cancer metastatic [Recovered/Resolved]
  - Off label use [None]

NARRATIVE: CASE EVENT DATE: 201606
